FAERS Safety Report 10353719 (Version 1)
Quarter: 2014Q3

REPORT INFORMATION
  Report Type: Spontaneous
  Country: US (occurrence: None)
  Receive Date: 20140729
  Receipt Date: 20140729
  Transmission Date: 20150326
  Serious: Yes (Hospitalization, Disabling)
  Sender: FDA-Public Use
  Company Number: None

PATIENT
  Age: 52 Year
  Sex: Female
  Weight: 92.53 kg

DRUGS (9)
  1. ZYPREXA [Concomitant]
     Active Substance: OLANZAPINE
  2. QUETIAPINE FUMARATE. [Suspect]
     Active Substance: QUETIAPINE FUMARATE
     Indication: SLEEP DISORDER
     Dosage: ONE TAB AT BEDTIME ORAL
     Route: 048
     Dates: start: 20130429, end: 20140601
  3. SEROQUEL [Concomitant]
     Active Substance: QUETIAPINE FUMARATE
  4. TRAZODONE [Concomitant]
     Active Substance: TRAZODONE HYDROCHLORIDE
  5. DEPAKOTE [Concomitant]
     Active Substance: DIVALPROEX SODIUM
  6. ATIVAN [Concomitant]
     Active Substance: LORAZEPAM
  7. QUETIAPINE FUMARATE. [Suspect]
     Active Substance: QUETIAPINE FUMARATE
     Indication: GENERAL SYMPTOM
     Dosage: ONE TAB AT BEDTIME ORAL
     Route: 048
     Dates: start: 20130429, end: 20140601
  8. REROD [Concomitant]
  9. ATORVASTATIN [Concomitant]
     Active Substance: ATORVASTATIN

REACTIONS (5)
  - Fatigue [None]
  - Somnolence [None]
  - General physical condition abnormal [None]
  - Mental disorder [None]
  - Hot flush [None]

NARRATIVE: CASE EVENT DATE: 20130805
